FAERS Safety Report 11925682 (Version 4)
Quarter: 2016Q1

REPORT INFORMATION
  Report Type: Spontaneous
  Country: BR (occurrence: BR)
  Receive Date: 20160118
  Receipt Date: 20160229
  Transmission Date: 20160526
  Serious: Yes (Other)
  Sender: FDA-Public Use
  Company Number: PHHY2016BR005584

PATIENT
  Sex: Female
  Weight: 60 kg

DRUGS (4)
  1. RASILEZ [Suspect]
     Active Substance: ALISKIREN
     Dosage: UNK (TABLET OF 150 MG), UNK
     Route: 048
     Dates: start: 20160112
  2. ASA [Concomitant]
     Active Substance: ASPIRIN
     Indication: ANTICOAGULANT THERAPY
     Dosage: 1 DF, QD
     Route: 048
  3. RASILEZ [Suspect]
     Active Substance: ALISKIREN
     Indication: BLOOD PRESSURE INADEQUATELY CONTROLLED
     Dosage: UNK (TABLET OF 150 MG), UNK
     Route: 048
  4. RASILEZ [Suspect]
     Active Substance: ALISKIREN
     Dosage: 0.5 DF (TABLET OF 300 MG), QD (IN THE MONING AND THE SHE STARTED TAKING IT AT NIGHT)
     Route: 048

REACTIONS (12)
  - Wrong technique in product usage process [Unknown]
  - Carotid artery occlusion [Unknown]
  - Dry throat [Recovered/Resolved]
  - Insomnia [Unknown]
  - Fear [Unknown]
  - Eye pain [Unknown]
  - Rhinitis [Not Recovered/Not Resolved]
  - Retinopathy [Unknown]
  - Blood pressure increased [Recovered/Resolved]
  - Therapeutic response decreased [Unknown]
  - Headache [Recovered/Resolved]
  - Anxiety [Unknown]

NARRATIVE: CASE EVENT DATE: 2010
